FAERS Safety Report 7908477-1 (Version None)
Quarter: 2011Q4

REPORT INFORMATION
  Report Type: 
  Country: None (occurrence: None)
  Receive Date: 20111110
  Receipt Date: 20111110
  Transmission Date: 20120403
  Serious: Yes (Life-Threatening, Hospitalization, Other)
  Sender: FDA-Public Use
  Company Number: None

PATIENT
  Age: 27 Year
  Sex: Female
  Weight: 63.5036 kg

DRUGS (1)
  1. ENBREL [Suspect]
     Dosage: 50 MG;BIW;SQ 2 DOSES
     Route: 058
     Dates: start: 20111001, end: 20111010

REACTIONS (2)
  - VERTEBRAL ARTERY DISSECTION [None]
  - CEREBROVASCULAR ACCIDENT [None]
